FAERS Safety Report 8600746-5 (Version None)
Quarter: 2012Q3

REPORT INFORMATION
  Report Type: 
  Country: None (occurrence: None)
  Receive Date: 20120817
  Receipt Date: 20120808
  Transmission Date: 20120928
  Serious: Yes (Hospitalization)
  Sender: FDA-Public Use
  Company Number: US-SAVIENT-2012S1000085

PATIENT
  Age: 62 Year
  Sex: Male
  Weight: 126.1 kg

DRUGS (12)
  1. KRYSTEXXA [Suspect]
     Route: 042
     Dates: start: 20120726, end: 20120726
  2. KRYSTEXXA [Suspect]
     Route: 042
     Dates: start: 20120710, end: 20120710
  3. CARDIAZEM /00489701/ [Concomitant]
     Indication: CARDIAC DISORDER
  4. CYCLOSPORINE [Concomitant]
     Indication: PRODUCT USED FOR UNKNOWN INDICATION
  5. IMURAN [Concomitant]
     Indication: PRODUCT USED FOR UNKNOWN INDICATION
  6. PREDNISONE TAB [Concomitant]
     Indication: GOUT
  7. SOLU-CORTEF [Concomitant]
     Indication: PREMEDICATION
     Dates: start: 20120626, end: 20120626
  8. KRYSTEXXA [Suspect]
     Indication: GOUT
     Route: 042
     Dates: start: 20120626, end: 20120626
  9. LORTAB [Concomitant]
     Indication: PAIN
  10. SOLU-CORTEF [Concomitant]
     Dates: start: 20120710, end: 20120710
  11. COLCHICINE [Concomitant]
     Indication: GOUT
  12. SOLU-CORTEF [Concomitant]
     Dates: start: 20120726, end: 20120726

REACTIONS (1)
  - CORONARY ARTERY DISEASE [None]
